FAERS Safety Report 5933903-7 (Version None)
Quarter: 2008Q4

REPORT INFORMATION
  Report Type: 
  Country: None (occurrence: None)
  Receive Date: 20081024
  Receipt Date: 20081015
  Transmission Date: 20090506
  Serious: Yes (Death)
  Sender: FDA-Public Use
  Company Number: 16441

PATIENT
  Sex: Female

DRUGS (8)
  1. MORPHINE SULFATE ER TABLETS 60MG (ETHEX CORP.) [Suspect]
  2. TRAZODONE HCL [Concomitant]
  3. CYCLOBENZAPRINE HCL [Concomitant]
  4. DIAZEPAM [Concomitant]
  5. DEXTROMETHORPHAN [Concomitant]
  6. FLUOXETINE [Concomitant]
  7. ZOLPIDEM [Concomitant]
  8. DOXYLAMINE [Concomitant]

REACTIONS (2)
  - DRUG TOXICITY [None]
  - PRODUCT QUALITY ISSUE [None]
